FAERS Safety Report 4859875-4 (Version None)
Quarter: 2005Q4

REPORT INFORMATION
  Report Type: 
  Country: None (occurrence: None)
  Receive Date: 20051215
  Receipt Date: 20051130
  Transmission Date: 20060501
  Serious: Yes (Life-Threatening)
  Sender: FDA-Public Use
  Company Number: 2005-02407

PATIENT
  Age: 51 Year
  Sex: Male
  Weight: 50 kg

DRUGS (6)
  1. VELCADE [Suspect]
     Indication: MULTIPLE MYELOMA
     Dosage: 2.10 MG, 2/WEEK, IV BOLUS
     Route: 040
     Dates: start: 20050901
  2. IBANDRONIC ACID (IBANDRONIC ACID) [Suspect]
     Indication: BONE PAIN
     Dosage: 6.00 MG, INTRAVENOUS
     Route: 042
     Dates: start: 20051014, end: 20051014
  3. IBANDRONIC ACID (IBANDRONIC ACID) [Suspect]
     Indication: BONE PAIN
     Dosage: 6.00 MG, INTRAVENOUS
     Route: 042
     Dates: start: 20051114, end: 20051114
  4. GLUCOBAY [Concomitant]
  5. ALLOPURINOL [Concomitant]
  6. DIPHENHYDRAMINE HCL [Concomitant]

REACTIONS (5)
  - CIRCUMORAL OEDEMA [None]
  - PERIORBITAL OEDEMA [None]
  - RASH [None]
  - REFUSAL OF TREATMENT BY PATIENT [None]
  - SWELLING FACE [None]
